FAERS Safety Report 25983249 (Version 2)
Quarter: 2025Q4

REPORT INFORMATION
  Report Type: Report from Study
  Country: US (occurrence: US)
  Receive Date: 20251031
  Receipt Date: 20251229
  Transmission Date: 20260117
  Serious: Yes (Hospitalization, Other)
  Sender: ABBVIE
  Company Number: US-ABBVIE-6507080

PATIENT
  Age: 71 Year
  Sex: Male

DRUGS (3)
  1. DUOPA [Suspect]
     Active Substance: CARBIDOPA\LEVODOPA
     Indication: Parkinson^s disease
     Route: 050
     Dates: start: 20240802
  2. DUOPA [Suspect]
     Active Substance: CARBIDOPA\LEVODOPA
  3. VYALEV [Suspect]
     Active Substance: FOSCARBIDOPA\FOSLEVODOPA
     Indication: Parkinson^s disease
     Route: 058
     Dates: start: 20251112

REACTIONS (10)
  - Dehydration [Recovering/Resolving]
  - Fall [Unknown]
  - Joint dislocation [Unknown]
  - Limb injury [Unknown]
  - Arthralgia [Unknown]
  - Device dislocation [Unknown]
  - Head injury [Recovering/Resolving]
  - Hand fracture [Recovering/Resolving]
  - Diarrhoea [Recovering/Resolving]
  - Influenza [Recovering/Resolving]

NARRATIVE: CASE EVENT DATE: 20250101
